FAERS Safety Report 19950927 (Version 3)
Quarter: 2022Q2

REPORT INFORMATION
  Report Type: Spontaneous
  Country: US (occurrence: US)
  Receive Date: 20211013
  Receipt Date: 20220421
  Transmission Date: 20220721
  Serious: Yes (Other)
  Sender: FDA-Public Use
  Company Number: US-PFIZER INC-2021771804

PATIENT
  Age: 60 Year
  Sex: Female

DRUGS (2)
  1. XELJANZ [Suspect]
     Active Substance: TOFACITINIB CITRATE
     Indication: Rheumatoid arthritis
     Dosage: 5 MG, 2X/DAY
     Route: 048
     Dates: start: 2020
  2. XELJANZ [Suspect]
     Active Substance: TOFACITINIB CITRATE
     Dosage: 5 MG, 2X/DAY
     Route: 048
     Dates: end: 20220407

REACTIONS (11)
  - Hand fracture [Unknown]
  - Inflammatory marker increased [Recovering/Resolving]
  - Pain [Recovering/Resolving]
  - Therapeutic response unexpected [Unknown]
  - Back pain [Unknown]
  - Muscle strain [Unknown]
  - Herpes zoster [Unknown]
  - Malaise [Not Recovered/Not Resolved]
  - Illness [Unknown]
  - Peripheral swelling [Unknown]
  - Pain in extremity [Unknown]

NARRATIVE: CASE EVENT DATE: 20200101
